FAERS Safety Report 4675253-5 (Version None)
Quarter: 2005Q2

REPORT INFORMATION
  Report Type: 
  Country: None (occurrence: None)
  Receive Date: 20050527
  Receipt Date: 20050518
  Transmission Date: 20051028
  Serious: Yes (Other)
  Sender: FDA-Public Use
  Company Number: PHNU2005DE01975

PATIENT
  Age: 55 Year
  Sex: Female

DRUGS (4)
  1. HERCEPTIN [Concomitant]
     Indication: BREAST CANCER METASTATIC
     Dosage: 1 DF, UNK
     Dates: start: 20030101, end: 20040401
  2. HERCEPTIN [Concomitant]
     Dosage: 1 DF, TIW
     Dates: start: 20040501
  3. ZOMETA [Suspect]
     Indication: METASTASES TO BONE
     Dosage: 4 MG, QMO
     Dates: start: 20030101, end: 20040401
  4. ZOMETA [Suspect]
     Dosage: 4 MG, TIW
     Dates: start: 20040501, end: 20050401

REACTIONS (6)
  - ASEPTIC NECROSIS BONE [None]
  - GINGIVAL INFECTION [None]
  - IMPAIRED HEALING [None]
  - PURULENT DISCHARGE [None]
  - TOOTH EXTRACTION [None]
  - WOUND DEBRIDEMENT [None]
